FAERS Safety Report 13875628 (Version 1)
Quarter: 2017Q3

REPORT INFORMATION
  Report Type: Spontaneous
  Country: US (occurrence: US)
  Receive Date: 20170817
  Receipt Date: 20170817
  Transmission Date: 20171127
  Serious: No
  Sender: FDA-Public Use
  Company Number: US-SUN PHARMACEUTICAL INDUSTRIES LTD-2016US-120681

PATIENT
  Sex: Female

DRUGS (1)
  1. SUMATRIPTAN. [Suspect]
     Active Substance: SUMATRIPTAN
     Indication: MIGRAINE
     Dosage: UNK
     Route: 051
     Dates: start: 2016

REACTIONS (7)
  - Product contamination physical [Unknown]
  - Feeling abnormal [Unknown]
  - Dizziness [Unknown]
  - Wrong technique in device usage process [Unknown]
  - Anxiety [Unknown]
  - Pain [Unknown]
  - Shock [Unknown]

NARRATIVE: CASE EVENT DATE: 2016
